FAERS Safety Report 4938736-6 (Version None)
Quarter: 2006Q1

REPORT INFORMATION
  Report Type: 
  Country: None (occurrence: None)
  Receive Date: 20060306
  Receipt Date: 20060223
  Transmission Date: 20060701
  Serious: Yes (Other)
  Sender: FDA-Public Use
  Company Number: 2006027825

PATIENT
  Age: 2 Year
  Sex: Male
  Weight: 12 kg

DRUGS (5)
  1. SOLU-MEDROL [Suspect]
     Indication: ASTHMA
     Dosage: UNK (24 MG, UNKNOWN), INTRAVENOUS
     Route: 042
     Dates: start: 20060223
  2. SOLU-MEDROL [Suspect]
     Indication: LOBAR PNEUMONIA
     Dosage: UNK (24 MG, UNKNOWN), INTRAVENOUS
     Route: 042
     Dates: start: 20060223
  3. CEFTRIAXONE [Suspect]
     Indication: LOBAR PNEUMONIA
     Dosage: UNK (610 MG, UNKNOWN), INTRAVENOUS
     Route: 042
     Dates: start: 20060223
  4. ALBUTEROL [Concomitant]
  5. ATROVENT [Concomitant]

REACTIONS (3)
  - ASTHMA [None]
  - CONDITION AGGRAVATED [None]
  - HYPERSENSITIVITY [None]
